FAERS Safety Report 4516347-4 (Version None)
Quarter: 2004Q4

REPORT INFORMATION
  Report Type: 
  Country: None (occurrence: None)
  Receive Date: 20041202
  Receipt Date: 20040831
  Transmission Date: 20050328
  Serious: No
  Sender: FDA-Public Use
  Company Number: 2004/03764

PATIENT
  Age: 21 Year
  Sex: Female

DRUGS (3)
  1. AUGMENTIN '125' [Suspect]
     Indication: TOOTH INFECTION
     Route: 048
     Dates: start: 20040822
  2. METRONIDAZOLE [Suspect]
     Indication: TOOTH INFECTION
     Dosage: 250MG TWICE PER DAY
     Route: 048
     Dates: start: 20040823
  3. HYDROCODONE [Suspect]
     Indication: ANALGESIC EFFECT
     Route: 048
     Dates: start: 20040822

REACTIONS (1)
  - HOARSENESS [None]
